FAERS Safety Report 9196713 (Version 1)
Quarter: 2013Q1

REPORT INFORMATION
  Report Type: Spontaneous
  Country: ES (occurrence: ES)
  Receive Date: 20130328
  Receipt Date: 20130328
  Transmission Date: 20140127
  Serious: Yes (Hospitalization)
  Sender: FDA-Public Use
  Company Number: ES-B.I. PHARMACEUTICALS,INC./RIDGEFIELD-2013-ES-00117ES

PATIENT
  Age: 72 Year
  Sex: Female

DRUGS (4)
  1. TRAJENTA [Suspect]
     Indication: DIABETES MELLITUS
     Dates: start: 20120530, end: 20120627
  2. TRAJENTA [Suspect]
     Dosage: 5 MG
     Dates: start: 20120705, end: 20120717
  3. PRANDIN [Suspect]
     Indication: DIABETES MELLITUS
     Dates: start: 20120530, end: 20120627
  4. PRANDIN [Suspect]
     Dosage: 1 MG
     Dates: start: 20120705, end: 20120717

REACTIONS (2)
  - Vomiting [Recovered/Resolved]
  - Diarrhoea [Recovered/Resolved]
